FAERS Safety Report 19064857 (Version 7)
Quarter: 2022Q4

REPORT INFORMATION
  Report Type: Spontaneous
  Country: US (occurrence: US)
  Receive Date: 20210326
  Receipt Date: 20221108
  Transmission Date: 20230112
  Serious: No
  Sender: FDA-Public Use
  Company Number: NVSC2021US064641

PATIENT
  Sex: Female

DRUGS (1)
  1. COSENTYX [Suspect]
     Active Substance: SECUKINUMAB
     Indication: Product used for unknown indication
     Dosage: 150 MG, UNKNOWN(150MG 2X PEN)
     Route: 065

REACTIONS (5)
  - Injection site bruising [Unknown]
  - Injection site discolouration [Unknown]
  - Injection site pain [Unknown]
  - Device malfunction [Unknown]
  - Therapeutic product effect incomplete [Unknown]
